FAERS Safety Report 9097787 (Version 1)
Quarter: 2013Q1

REPORT INFORMATION
  Report Type: Spontaneous
  Country: JP (occurrence: JP)
  Receive Date: 20130212
  Receipt Date: 20130212
  Transmission Date: 20140127
  Serious: Yes (Hospitalization, Other)
  Sender: FDA-Public Use
  Company Number: JP-BAYER-2013-014429

PATIENT
  Age: 33 Year
  Sex: Female

DRUGS (13)
  1. BAYASPIRIN [Suspect]
     Dosage: LOW DOSE
  2. HEPARIN [Suspect]
     Dosage: LOW DOSE
  3. HEPARIN [Suspect]
     Dosage: 10000 U, QD
  4. DIURETICS [Suspect]
  5. FUROSEMIDE [Concomitant]
  6. SPIRONOLACTONE [Concomitant]
     Dosage: UNK
  7. HYDROCHLOROTHIAZIDE [Concomitant]
  8. PILSICAINIDE HYDROCHLORIDE [Concomitant]
  9. WARFARIN [Concomitant]
  10. WARFARIN [Concomitant]
  11. DIGOXIN [Concomitant]
  12. DANAPAROID SODIUM [Concomitant]
  13. ANESTHESIA [Concomitant]

REACTIONS (9)
  - Subchorionic haematoma [None]
  - Genital haemorrhage [None]
  - Shock haemorrhagic [None]
  - Exposure during pregnancy [None]
  - Hypokalaemia [None]
  - Brain natriuretic peptide increased [Recovering/Resolving]
  - Ascites [None]
  - Uterine contractions during pregnancy [None]
  - Caesarean section [None]
